FAERS Safety Report 9959959 (Version 1)
Quarter: 2014Q1

REPORT INFORMATION
  Report Type: Report from Study
  Country: US (occurrence: US)
  Receive Date: 20140305
  Receipt Date: 20140305
  Transmission Date: 20141002
  Serious: No
  Sender: FDA-Public Use
  Company Number: US-ABBVIE-13P-163-1103107-00

PATIENT
  Age: 16 Year
  Sex: Female

DRUGS (5)
  1. HUMIRA [Suspect]
     Indication: CROHN^S DISEASE
     Dosage: LOADING DOSE
     Dates: start: 20130603, end: 20130603
  2. HUMIRA [Suspect]
     Dosage: LOADING DOSE
     Dates: start: 20130604
  3. METHYLPRED [Concomitant]
     Indication: CROHN^S DISEASE
     Dosage: 16 MG DAILY
  4. DEXILANT [Concomitant]
     Indication: DYSPEPSIA
     Dosage: 60 MG DAILY
  5. CULTURELLE [Concomitant]
     Indication: PROBIOTIC THERAPY
     Dosage: 1 DAILY

REACTIONS (2)
  - Injection site pain [Not Recovered/Not Resolved]
  - Headache [Not Recovered/Not Resolved]
